FAERS Safety Report 5473603-3 (Version None)
Quarter: 2007Q4

REPORT INFORMATION
  Report Type: 
  Country: None (occurrence: None)
  Receive Date: 20071001
  Receipt Date: 20051201
  Transmission Date: 20080405
  Serious: Yes (Other)
  Sender: FDA-Public Use
  Company Number: US-PFIZER INC-2005014990

PATIENT
  Sex: Male
  Weight: 76.7 kg

DRUGS (14)
  1. NEURONTIN [Suspect]
     Indication: EPILEPSY
     Route: 048
     Dates: start: 19990101, end: 20050110
  2. NEURONTIN [Suspect]
     Indication: CONVULSION PROPHYLAXIS
  3. DILANTIN [Interacting]
     Indication: EPILEPSY
     Route: 048
  4. DILANTIN [Interacting]
     Indication: CONVULSION PROPHYLAXIS
  5. WATER [Suspect]
     Indication: ILL-DEFINED DISORDER
     Dosage: FREQ:UNKNOWN
     Route: 065
  6. CARBAMAZEPINE [Suspect]
     Indication: CONVULSION
     Dosage: FREQ:UNKNOWN
     Route: 065
  7. TRILEPTAL [Suspect]
     Indication: EPILEPSY
     Dosage: FREQ:UNKNOWN
     Route: 065
  8. TRILEPTAL [Suspect]
     Indication: CONVULSION PROPHYLAXIS
  9. PHENOBARBITAL TAB [Suspect]
     Indication: EPILEPSY
     Dosage: FREQ:UNKNOWN
     Route: 065
  10. PHENOBARBITAL TAB [Suspect]
     Indication: CONVULSION PROPHYLAXIS
  11. AMITRIPTYLINE HCL [Concomitant]
     Route: 048
  12. BENADRYL [Concomitant]
     Route: 048
  13. ALL OTHER THERAPEUTIC PRODUCTS [Concomitant]
     Route: 065
  14. ALL OTHER THERAPEUTIC PRODUCTS [Concomitant]
     Route: 065

REACTIONS (41)
  - ABDOMINAL DISCOMFORT [None]
  - AFFECT LABILITY [None]
  - AGGRESSION [None]
  - ALOPECIA [None]
  - ANGER [None]
  - ANTICONVULSANT DRUG LEVEL DECREASED [None]
  - ANTICONVULSANT DRUG LEVEL INCREASED [None]
  - ARTHRITIS [None]
  - BRONCHITIS [None]
  - BRONCHITIS CHRONIC [None]
  - CONVULSION [None]
  - DRUG INEFFECTIVE [None]
  - DRUG INTERACTION [None]
  - DRUG LEVEL FLUCTUATING [None]
  - EYE MOVEMENT DISORDER [None]
  - FEELING ABNORMAL [None]
  - FOOT DEFORMITY [None]
  - HAEMORRHOIDS [None]
  - HEADACHE [None]
  - HEPATIC ENZYME INCREASED [None]
  - HEPATITIS A [None]
  - HEPATITIS B [None]
  - HEPATITIS C [None]
  - HYPOAESTHESIA [None]
  - INFLUENZA [None]
  - INSOMNIA [None]
  - IRRITABILITY [None]
  - LUNG DISORDER [None]
  - LUNG INFECTION [None]
  - MENTAL DISORDER [None]
  - NERVOUS SYSTEM DISORDER [None]
  - NEUROPATHY PERIPHERAL [None]
  - OEDEMA PERIPHERAL [None]
  - PAIN IN EXTREMITY [None]
  - PERIPHERAL COLDNESS [None]
  - PLEURITIC PAIN [None]
  - PNEUMONIA [None]
  - RASH [None]
  - SOMNOLENCE [None]
  - VISION BLURRED [None]
  - WEIGHT DECREASED [None]
